FAERS Safety Report 6275208-3 (Version None)
Quarter: 2009Q3

REPORT INFORMATION
  Report Type: 
  Country: None (occurrence: None)
  Receive Date: 20090721
  Receipt Date: 20090713
  Transmission Date: 20100115
  Serious: Yes (Hospitalization, Other)
  Sender: FDA-Public Use
  Company Number: MX-AVENTIS-200917040GDDC

PATIENT
  Age: 75 Year
  Sex: Male

DRUGS (4)
  1. DOCETAXEL [Suspect]
     Route: 042
     Dates: start: 20090618, end: 20090618
  2. CODE UNBROKEN [Suspect]
     Route: 048
     Dates: start: 20090518
  3. PREDNISONE TAB [Suspect]
     Route: 048
     Dates: start: 20090618
  4. DEXAMETHASONE [Suspect]
     Indication: PREMEDICATION

REACTIONS (4)
  - DIARRHOEA [None]
  - LEUKOPENIA [None]
  - METABOLIC ACIDOSIS [None]
  - PULMONARY EMBOLISM [None]
